FAERS Safety Report 6890811-5 (Version None)
Quarter: 2010Q3

REPORT INFORMATION
  Report Type: 
  Country: None (occurrence: None)
  Receive Date: 20100731
  Receipt Date: 20090325
  Transmission Date: 20110219
  Serious: No
  Sender: FDA-Public Use
  Company Number: US-PFIZER INC-2009179934

PATIENT
  Sex: Female

DRUGS (2)
  1. LIPITOR [Suspect]
     Dosage: UNK
  2. CELEBREX [Suspect]
     Indication: ARTHRITIS
     Dosage: UNK

REACTIONS (3)
  - ARTHRITIS [None]
  - MEDIAL TIBIAL STRESS SYNDROME [None]
  - TONGUE DISORDER [None]
